FAERS Safety Report 20665670 (Version 1)
Quarter: 2022Q2

REPORT INFORMATION
  Report Type: Spontaneous
  Country: NL (occurrence: NL)
  Receive Date: 20220402
  Receipt Date: 20220402
  Transmission Date: 20220721
  Serious: Yes (Life-Threatening, Hospitalization, Other)
  Sender: FDA-Public Use
  Company Number: NL-Accord-258517

PATIENT
  Age: 76 Year
  Sex: Female

DRUGS (1)
  1. AMITRIPTYLINE [Suspect]
     Active Substance: AMITRIPTYLINE
     Dosage: RESUMED MEDICATION ON HER OWN INITIATIVE

REACTIONS (11)
  - Overdose [Unknown]
  - Coma [Recovered/Resolved]
  - Self-medication [Unknown]
  - Seizure [Recovered/Resolved]
  - Loss of consciousness [Recovered/Resolved]
  - Defect conduction intraventricular [Recovered/Resolved]
  - Antidepressant drug clearance decreased [Recovered/Resolved]
  - Mydriasis [Recovered/Resolved]
  - Toxicity to various agents [Recovered/Resolved]
  - Drug level increased [Recovered/Resolved]
  - Electrocardiogram QRS complex prolonged [Recovered/Resolved]
